FAERS Safety Report 13426878 (Version 1)
Quarter: 2017Q2

REPORT INFORMATION
  Report Type: Spontaneous
  Country: US (occurrence: US)
  Receive Date: 20170411
  Receipt Date: 20170411
  Transmission Date: 20170830
  Serious: No
  Sender: FDA-Public Use
  Company Number: US-PFIZER INC-2017151976

PATIENT
  Age: 61 Year
  Sex: Male

DRUGS (6)
  1. TRAMADOL. [Concomitant]
     Active Substance: TRAMADOL
     Dosage: UNK
  2. VALSARTAN AND HYDROCHLOROTHIAZIDE [Concomitant]
     Active Substance: HYDROCHLOROTHIAZIDE\VALSARTAN
     Dosage: UNK
  3. XELJANZ XR [Suspect]
     Active Substance: TOFACITINIB CITRATE
     Indication: RHEUMATOID ARTHRITIS
     Dosage: 11 MG, 1X/DAY
     Route: 048
     Dates: start: 201701
  4. DULOXETINE. [Concomitant]
     Active Substance: DULOXETINE
  5. TAMSULOSIN [Concomitant]
     Active Substance: TAMSULOSIN
     Dosage: UNK
  6. ALFUZOSIN [Concomitant]
     Active Substance: ALFUZOSIN
     Dosage: UNK

REACTIONS (4)
  - Oropharyngeal pain [Unknown]
  - Fatigue [Unknown]
  - Diarrhoea [Unknown]
  - Vision blurred [Unknown]
